FAERS Safety Report 6364345-0 (Version None)
Quarter: 2009Q3

REPORT INFORMATION
  Report Type: 
  Country: None (occurrence: None)
  Receive Date: 20090919
  Receipt Date: 20090718
  Transmission Date: 20100115
  Serious: No
  Sender: FDA-Public Use
  Company Number: US-ABBOTT-09P-163-0586413-00

PATIENT
  Sex: Male
  Weight: 117.13 kg

DRUGS (1)
  1. HUMIRA [Suspect]
     Indication: RHEUMATOID ARTHRITIS
     Dates: start: 20090423

REACTIONS (6)
  - DRUG DOSE OMISSION [None]
  - FALL [None]
  - JOINT HYPEREXTENSION [None]
  - JOINT INJURY [None]
  - MALAISE [None]
  - NAUSEA [None]
